FAERS Safety Report 6775611-9 (Version None)
Quarter: 2010Q2

REPORT INFORMATION
  Report Type: 
  Country: None (occurrence: None)
  Receive Date: 20100617
  Receipt Date: 20100607
  Transmission Date: 20101027
  Serious: Yes (Life-Threatening, Hospitalization)
  Sender: FDA-Public Use
  Company Number: US-MPIJNJ-2010-02777

PATIENT
  Sex: Female
  Weight: 56.3 kg

DRUGS (6)
  1. VELCADE [Suspect]
     Indication: RENAL CELL CARCINOMA
     Dosage: 1.8 MG/M2, CYCLIC
     Route: 042
     Dates: start: 20100111, end: 20100329
  2. BEVACIZUMAB [Suspect]
     Indication: RENAL CELL CARCINOMA
     Dosage: 15 MG/KG, CYCLIC
     Route: 042
     Dates: start: 20100111, end: 20100322
  3. SYNTHROID [Concomitant]
     Indication: HYPOTHYROIDISM
     Dosage: 50 UG, QD
     Route: 048
     Dates: start: 20100111
  4. ZOVIRAX                            /00587301/ [Concomitant]
     Indication: HERPES VIRUS INFECTION
     Dosage: 800 MG, QD
     Dates: start: 20090101
  5. MEGACE [Concomitant]
     Indication: APPETITE DISORDER
     Dosage: 40 MG, PRN
     Dates: start: 20100115
  6. ASPIRIN [Concomitant]
     Indication: CARDIOVASCULAR EVENT PROPHYLAXIS
     Dosage: 81 MG, QD
     Dates: start: 20070101

REACTIONS (3)
  - DEHYDRATION [None]
  - DIARRHOEA [None]
  - URINARY TRACT INFECTION [None]
